FAERS Safety Report 10601531 (Version 2)
Quarter: 2015Q2

REPORT INFORMATION
  Report Type: Report from Study
  Country: TR (occurrence: TR)
  Receive Date: 20141124
  Receipt Date: 20150528
  Transmission Date: 20150821
  Serious: Yes (Hospitalization)
  Sender: FDA-Public Use
  Company Number: TR-NOVOPROD-429390

PATIENT
  Sex: Female
  Weight: 2 kg

DRUGS (4)
  1. NOVORAPID [Suspect]
     Active Substance: INSULIN ASPART
     Indication: GESTATIONAL DIABETES
     Dosage: 18 IU, QD
     Route: 064
     Dates: start: 20140305, end: 20140804
  2. INSULIN DETEMIR FLEXPEN [Suspect]
     Active Substance: INSULIN DETEMIR
     Indication: GESTATIONAL DIABETES
     Dosage: 8 U, QD
     Route: 064
     Dates: start: 20140305, end: 20140804
  3. MAGNORM [Concomitant]
     Indication: MINERAL SUPPLEMENTATION
     Dosage: 1X1
     Route: 064
     Dates: start: 20140305, end: 20140804
  4. SANTAFER FORT [Concomitant]
     Indication: MINERAL SUPPLEMENTATION
     Dosage: 1X1
     Route: 064
     Dates: start: 20140804

REACTIONS (4)
  - Foetal exposure during pregnancy [Recovered/Resolved]
  - Jaundice neonatal [Recovered/Resolved with Sequelae]
  - Neonatal respiratory distress syndrome [Recovered/Resolved with Sequelae]
  - Premature baby [Recovered/Resolved with Sequelae]

NARRATIVE: CASE EVENT DATE: 20140305
